FAERS Safety Report 12736162 (Version 1)
Quarter: 2016Q3

REPORT INFORMATION
  Report Type: Report from Study
  Country: FR (occurrence: FR)
  Receive Date: 20160912
  Receipt Date: 20160912
  Transmission Date: 20161109
  Serious: Yes (Hospitalization)
  Sender: FDA-Public Use
  Company Number: PHHY2012FR141364

PATIENT
  Age: 57 Year
  Sex: Female
  Weight: 91 kg

DRUGS (1)
  1. ELTROMBOPAG [Suspect]
     Active Substance: ELTROMBOPAG
     Indication: IMMUNE THROMBOCYTOPENIC PURPURA
     Dosage: 50 MG, QD
     Route: 048
     Dates: start: 20110707, end: 20111214

REACTIONS (7)
  - Dyspnoea exertional [Recovered/Resolved]
  - Bronchitis [Unknown]
  - Productive cough [Unknown]
  - Hepatomegaly [Unknown]
  - Pulmonary embolism [Recovered/Resolved]
  - Orthopnoea [Recovered/Resolved]
  - Rales [Unknown]

NARRATIVE: CASE EVENT DATE: 201111
